FAERS Safety Report 5333398-0 (Version None)
Quarter: 2007Q1

REPORT INFORMATION
  Report Type: 
  Country: None (occurrence: None)
  Receive Date: 20070306
  Receipt Date: 20060206
  Transmission Date: 20070707
  Serious: Yes (Hospitalization)
  Sender: FDA-Public Use
  Company Number: A03200600717

PATIENT
  Age: 86 Year
  Sex: Female

DRUGS (2)
  1. PLAVIX [Suspect]
     Dosage: 75 MG QD ORAL
     Route: 048
     Dates: start: 20041101
  2. HYDROCHLOROTHIAZIDE [Concomitant]

REACTIONS (4)
  - AGITATION [None]
  - ANXIETY [None]
  - GASTROINTESTINAL ULCER HAEMORRHAGE [None]
  - WEIGHT DECREASED [None]
